FAERS Safety Report 6167211-9 (Version None)
Quarter: 2009Q2

REPORT INFORMATION
  Report Type: 
  Country: None (occurrence: None)
  Receive Date: 20090424
  Receipt Date: 20090424
  Transmission Date: 20091009
  Serious: Yes (Life-Threatening, Hospitalization, Other)
  Sender: FDA-Public Use
  Company Number: IL-PFIZER INC-972-0769-M0200001

PATIENT

DRUGS (3)
  1. ERYTHROMYCIN [Interacting]
     Dosage: DAILY
     Route: 048
  2. VERAPAMIL HCL [Suspect]
     Indication: ANGINA PECTORIS
     Dosage: BID
     Route: 048
  3. RAMIPRIL [Concomitant]
     Route: 065

REACTIONS (4)
  - ATRIOVENTRICULAR BLOCK COMPLETE [None]
  - BRONCHITIS [None]
  - DRUG INTERACTION [None]
  - ELECTROCARDIOGRAM QT PROLONGED [None]
